FAERS Safety Report 6152029-3 (Version None)
Quarter: 2009Q2

REPORT INFORMATION
  Report Type: 
  Country: None (occurrence: None)
  Receive Date: 20090410
  Receipt Date: 20090407
  Transmission Date: 20091009
  Serious: Yes (Hospitalization)
  Sender: FDA-Public Use
  Company Number: JP-BRISTOL-MYERS SQUIBB COMPANY-14215966

PATIENT
  Age: 52 Year
  Sex: Male
  Weight: 71 kg

DRUGS (4)
  1. ABATACEPT [Suspect]
     Indication: RHEUMATOID ARTHRITIS
     Dosage: INTERRUPTED ON 22MAY08 .14 DOSES WERE COMPLETED FROM 18JUN07-22MAY08
     Route: 041
     Dates: start: 20070618
  2. PREDNISOLONE [Suspect]
     Indication: RHEUMATOID ARTHRITIS
     Route: 048
     Dates: start: 20080129
  3. ACTOS [Concomitant]
     Indication: DIABETES MELLITUS
     Route: 048
     Dates: start: 20070718
  4. NOVORAPID [Concomitant]
     Indication: DIABETES MELLITUS
     Dosage: 1 DOSAGE FORM = 14 UNITS
     Route: 058
     Dates: start: 20071013

REACTIONS (1)
  - CATARACT [None]
